FAERS Safety Report 6202370-0 (Version None)
Quarter: 2009Q2

REPORT INFORMATION
  Report Type: 
  Country: None (occurrence: None)
  Receive Date: 20090518
  Receipt Date: 20090309
  Transmission Date: 20091009
  Serious: No
  Sender: FDA-Public Use
  Company Number: WAES 0903USA01439

PATIENT
  Age: 88 Year
  Sex: Female

DRUGS (3)
  1. JANUVIA [Suspect]
     Indication: DIABETES MELLITUS
     Dosage: 100 MG/ DAILY / PO; 25 MG/DAILY/PO; 50 MG/DAILY/PO
     Route: 048
     Dates: start: 20070909
  2. .. [Concomitant]
  3. POTASSIUM CHLORIDE [Concomitant]

REACTIONS (7)
  - CONTUSION [None]
  - COUGH [None]
  - NASAL CONGESTION [None]
  - ONYCHOMALACIA [None]
  - PROTEINURIA [None]
  - SINUSITIS [None]
  - VISION BLURRED [None]
